FAERS Safety Report 21640408 (Version 2)
Quarter: 2022Q4

REPORT INFORMATION
  Report Type: Report from Study
  Country: DE (occurrence: DE)
  Receive Date: 20221124
  Receipt Date: 20221221
  Transmission Date: 20230113
  Serious: Yes (Other)
  Sender: FDA-Public Use
  Company Number: DE-JNJFOC-20221141742

PATIENT
  Sex: Male

DRUGS (3)
  1. SPRAVATO [Suspect]
     Active Substance: ESKETAMINE
     Indication: Depression
     Dosage: INITIAL DOSE OF 3 X 28 MG SPRAVATO, THEN 2X 28 MG EVERY 5 MINUTES
  2. SPRAVATO [Suspect]
     Active Substance: ESKETAMINE
     Indication: Post-traumatic stress disorder
  3. SPRAVATO [Suspect]
     Active Substance: ESKETAMINE
     Indication: Attention deficit hyperactivity disorder

REACTIONS (9)
  - Altered state of consciousness [Unknown]
  - Blood pressure abnormal [Unknown]
  - Tremor [Unknown]
  - Dissociative disorder [Unknown]
  - Depression [Unknown]
  - Asthenia [Unknown]
  - Hypertension [Unknown]
  - Product administration error [Unknown]
  - Drug ineffective [Unknown]
